FAERS Safety Report 6585074-4 (Version None)
Quarter: 2010Q1

REPORT INFORMATION
  Report Type: 
  Country: None (occurrence: None)
  Receive Date: 20100217
  Receipt Date: 20100123
  Transmission Date: 20100710
  Serious: No
  Sender: FDA-Public Use
  Company Number: US-ROCHE-677443

PATIENT
  Sex: Male

DRUGS (1)
  1. TAMIFLU [Suspect]
     Dosage: DOSING AMOUNT: 1/2 TEASPOON, STRENGTH: 12 MG/ML
     Route: 048
     Dates: start: 20091228, end: 20100102

REACTIONS (3)
  - DIARRHOEA [None]
  - EXPIRED DRUG ADMINISTERED [None]
  - VOMITING [None]
